FAERS Safety Report 14067545 (Version 11)
Quarter: 2018Q1

REPORT INFORMATION
  Report Type: Spontaneous
  Country: US (occurrence: US)
  Receive Date: 20171009
  Receipt Date: 20180112
  Transmission Date: 20180508
  Serious: Yes (Hospitalization)
  Sender: FDA-Public Use
  Company Number: US-ACTELION-A-NJ2017-160418

PATIENT
  Age: 41 Year
  Sex: Female
  Weight: 70.3 kg

DRUGS (4)
  1. XARELTO [Concomitant]
     Active Substance: RIVAROXABAN
  2. FLOLAN [Concomitant]
     Active Substance: EPOPROSTENOL SODIUM
  3. OPSUMIT [Suspect]
     Active Substance: MACITENTAN
     Indication: PULMONARY ARTERIAL HYPERTENSION
     Dosage: 10 MG, QD
     Route: 048
  4. ADCIRCA [Concomitant]
     Active Substance: TADALAFIL

REACTIONS (12)
  - Anaemia [Unknown]
  - Abdominal pain upper [Unknown]
  - Cor pulmonale [Unknown]
  - Chest pain [Unknown]
  - Unevaluable event [Unknown]
  - Haemorrhage [Unknown]
  - Blood count abnormal [Unknown]
  - Upper respiratory tract infection [Unknown]
  - Transplant [Unknown]
  - Haemoglobin decreased [Unknown]
  - Pulmonary hypertension [Unknown]
  - Syncope [Unknown]

NARRATIVE: CASE EVENT DATE: 20171009
